FAERS Safety Report 7716044-8 (Version None)
Quarter: 2011Q3

REPORT INFORMATION
  Report Type: 
  Country: None (occurrence: None)
  Receive Date: 20110829
  Receipt Date: 20110819
  Transmission Date: 20111222
  Serious: Yes (Hospitalization)
  Sender: FDA-Public Use
  Company Number: US-GLAXOSMITHKLINE-A0877037A

PATIENT
  Age: 57 Year
  Sex: Female
  Weight: 81.8 kg

DRUGS (15)
  1. NEURONTIN [Concomitant]
  2. LEVEMIR [Concomitant]
  3. METFORMIN HYDROCHLORIDE [Concomitant]
  4. PLAVIX [Concomitant]
  5. PEPCID [Concomitant]
  6. POTASSIUM CHLORIDE [Concomitant]
  7. LISINOPRIL [Concomitant]
  8. LASIX [Concomitant]
  9. ALPRAZOLAM [Concomitant]
  10. ASPIRIN [Concomitant]
  11. AVANDIA [Suspect]
     Indication: DIABETES MELLITUS
     Dosage: 8MG PER DAY
     Route: 048
     Dates: start: 20001101, end: 20070501
  12. XANAX [Concomitant]
  13. INSULIN [Concomitant]
  14. LIPITOR [Concomitant]
  15. COREG [Concomitant]

REACTIONS (8)
  - CARDIAC ARREST [None]
  - MYOCARDIAL INFARCTION [None]
  - FLUID OVERLOAD [None]
  - CORONARY ARTERY DISEASE [None]
  - CARDIAC FAILURE CONGESTIVE [None]
  - FLUID RETENTION [None]
  - ISCHAEMIC CARDIOMYOPATHY [None]
  - VASCULAR GRAFT [None]
